FAERS Safety Report 4373519-X (Version None)
Quarter: 2004Q1

REPORT INFORMATION
  Report Type: 
  Country: None (occurrence: None)
  Receive Date: 20040305
  Receipt Date: 20040128
  Transmission Date: 20041129
  Serious: Yes (Other)
  Sender: FDA-Public Use
  Company Number: 2004UW01499

PATIENT
  Age: 58 Year
  Sex: Female
  Weight: 81.1939 kg

DRUGS (11)
  1. CRESTOR [Suspect]
     Indication: BLOOD CHOLESTEROL INCREASED
     Dosage: 10 MG PO
     Route: 048
  2. TOPAMAX [Concomitant]
  3. PREVACID [Concomitant]
  4. PHENTERMINE [Concomitant]
  5. SYNTHROID [Concomitant]
  6. ALOPURINOL ^BELUPO^ [Concomitant]
  7. GLUCOPHAGE [Concomitant]
  8. HYDROCHLOROTHIAZIDE [Concomitant]
  9. COUMADIN [Concomitant]
  10. FOLIC ACID [Concomitant]
  11. K-DUR 10 [Concomitant]

REACTIONS (2)
  - MUSCLE CRAMP [None]
  - MUSCLE TIGHTNESS [None]
